FAERS Safety Report 13331136 (Version 1)
Quarter: 2017Q1

REPORT INFORMATION
  Report Type: Spontaneous
  Country: US (occurrence: US)
  Receive Date: 20170313
  Receipt Date: 20170313
  Transmission Date: 20170428
  Serious: Yes (Other)
  Sender: FDA-Public Use
  Company Number: None

PATIENT
  Age: 26 Year
  Sex: Male
  Weight: 84 kg

DRUGS (1)
  1. XOLAIR [Suspect]
     Active Substance: OMALIZUMAB
     Indication: URTICARIA
     Dosage: ?          QUANTITY:2 VIALS;OTHER FREQUENCY:MONTHLY;OTHER ROUTE:SC?
     Route: 058
     Dates: start: 20160521, end: 20170121

REACTIONS (3)
  - Dyslipidaemia [None]
  - Blood cholesterol increased [None]
  - Low density lipoprotein increased [None]

NARRATIVE: CASE EVENT DATE: 20170313
